FAERS Safety Report 10088127 (Version 1)
Quarter: 2014Q2

REPORT INFORMATION
  Report Type: Report from Study
  Country: CO (occurrence: CO)
  Receive Date: 20140421
  Receipt Date: 20140421
  Transmission Date: 20141212
  Serious: Yes (Other)
  Sender: FDA-Public Use
  Company Number: CO-ROCHE-1383913

PATIENT
  Age: 17 Year
  Sex: Female

DRUGS (1)
  1. METHOXY POLYETHYLENE GLYCOL-EPOETIN BETA [Suspect]
     Indication: NEPHROGENIC ANAEMIA
     Route: 058
     Dates: start: 20131216, end: 20140318

REACTIONS (2)
  - Hypercreatinaemia [Recovered/Resolved with Sequelae]
  - Kidney transplant rejection [Not Recovered/Not Resolved]
